FAERS Safety Report 4698026-6 (Version None)
Quarter: 2005Q2

REPORT INFORMATION
  Report Type: 
  Country: None (occurrence: None)
  Receive Date: 20050623
  Receipt Date: 20050613
  Transmission Date: 20051028
  Serious: Yes (Death)
  Sender: FDA-Public Use
  Company Number: DEWYE736013JUN05

PATIENT
  Sex: Male

DRUGS (2)
  1. ENBREL [Suspect]
     Indication: PYODERMA GANGRENOSUM
     Dosage: UNKNOWN
     Route: 058
  2. CORTISONE [Concomitant]
     Indication: PYODERMA GANGRENOSUM
     Dosage: UNKNOWN
     Route: 056

REACTIONS (1)
  - DEATH [None]
